FAERS Safety Report 18547770 (Version 2)
Quarter: 2020Q4

REPORT INFORMATION
  Report Type: Spontaneous
  Country: JP (occurrence: JP)
  Receive Date: 20201126
  Receipt Date: 20201208
  Transmission Date: 20210114
  Serious: Yes (Hospitalization)
  Sender: FDA-Public Use
  Company Number: JP-ROCHE-2712527

PATIENT
  Age: 76 Year
  Sex: Male

DRUGS (3)
  1. AMVALO [Concomitant]
     Active Substance: AMLODIPINE BESYLATE\VALSARTAN
     Dosage: DOSAGE IS UNCERTAIN.
     Route: 048
  2. TECENTRIQ [Suspect]
     Active Substance: ATEZOLIZUMAB
     Indication: NON-SMALL CELL LUNG CANCER
     Route: 041
     Dates: start: 20200728
  3. BEZAFIBRATE [Concomitant]
     Active Substance: BEZAFIBRATE
     Dosage: DOSAGE IS UNCERTAIN.
     Route: 048

REACTIONS (1)
  - Urticaria [Recovering/Resolving]

NARRATIVE: CASE EVENT DATE: 20200825
